FAERS Safety Report 7884005-4 (Version None)
Quarter: 2011Q4

REPORT INFORMATION
  Report Type: 
  Country: None (occurrence: None)
  Receive Date: 20111102
  Receipt Date: 20111024
  Transmission Date: 20120403
  Serious: Yes (Hospitalization)
  Sender: FDA-Public Use
  Company Number: PHHY2011JP86064

PATIENT
  Age: 42 Year
  Sex: Male

DRUGS (10)
  1. LITHIUM CARBONATE [Concomitant]
     Indication: BIPOLAR I DISORDER
     Dosage: 600 MG, UNK
     Dates: start: 20101001, end: 20101208
  2. ALLEGRA [Concomitant]
     Indication: PHARYNGITIS
     Dosage: UNK
     Route: 048
     Dates: start: 20101206, end: 20101212
  3. INDOMETHACIN [Concomitant]
     Indication: PHARYNGITIS
     Dosage: UNK
     Dates: start: 20101206, end: 20101212
  4. AZULENE [Concomitant]
     Indication: PHARYNGITIS
     Dosage: UNK
     Dates: start: 20101206, end: 20101212
  5. CLEMASTINE FUMARATE [Concomitant]
     Indication: PHARYNGITIS
     Dosage: UNK
     Route: 048
     Dates: start: 20101206, end: 20101212
  6. FAMOTIDINE [Concomitant]
     Indication: GASTRIC ULCER
     Dosage: UNK
     Route: 048
     Dates: start: 20101206, end: 20101212
  7. TEGRETOL [Suspect]
     Indication: BIPOLAR I DISORDER
     Dosage: 100 MG, ONCE DAILY
     Dates: start: 20101101, end: 20101208
  8. LEVOFLOXACIN [Concomitant]
     Indication: PHARYNGITIS
     Dosage: 500 MG, UNK
     Dates: start: 20101206, end: 20101212
  9. ACETAMINOPHEN [Concomitant]
     Indication: PHARYNGITIS
     Dosage: UNK
     Route: 048
     Dates: start: 20101206, end: 20101212
  10. IRZAIM [Concomitant]
     Indication: PHARYNGITIS
     Dosage: UNK
     Route: 048
     Dates: start: 20101206, end: 20101201

REACTIONS (12)
  - RENAL IMPAIRMENT [None]
  - HUMAN HERPES VIRUS 6 SEROLOGY POSITIVE [None]
  - BLOOD GLUCOSE INCREASED [None]
  - PYREXIA [None]
  - RASH [None]
  - IMMUNOGLOBULINS DECREASED [None]
  - LIVER DISORDER [None]
  - EOSINOPHIL PERCENTAGE INCREASED [None]
  - DEPRESSED LEVEL OF CONSCIOUSNESS [None]
  - WHITE BLOOD CELL COUNT INCREASED [None]
  - LYMPHOCYTE PERCENTAGE DECREASED [None]
  - DRUG RASH WITH EOSINOPHILIA AND SYSTEMIC SYMPTOMS [None]
